FAERS Safety Report 4510763-2 (Version None)
Quarter: 2004Q4

REPORT INFORMATION
  Report Type: 
  Country: None (occurrence: None)
  Receive Date: 20041122
  Receipt Date: 20041117
  Transmission Date: 20050328
  Serious: Yes (Hospitalization)
  Sender: FDA-Public Use
  Company Number: 200410523BYL

PATIENT
  Age: 63 Year
  Sex: Male
  Weight: 72 kg

DRUGS (11)
  1. VARDENAFIL HCL 20 MG (VARDENAFIL HYDROCHLORIDE) [Suspect]
     Indication: ERECTILE DYSFUNCTION
     Dosage: 20 MG, TOTAL DAILY, ORAL
     Route: 048
     Dates: start: 20040824
  2. VARDENAFIL HCL 20 MG (VARDENAFIL HYDROCHLORIDE) [Suspect]
     Indication: ERECTILE DYSFUNCTION
     Dosage: 20 MG, TOTAL DAILY, ORAL
     Route: 048
     Dates: start: 20040901
  3. VARDENAFIL HCL 20 MG (VARDENAFIL HYDROCHLORIDE) [Suspect]
     Indication: ERECTILE DYSFUNCTION
     Dosage: 20 MG, TOTAL DAILY, ORAL
     Route: 048
     Dates: start: 20040904
  4. VARDENAFIL HCL 20 MG (VARDENAFIL HYDROCHLORIDE) [Suspect]
     Indication: ERECTILE DYSFUNCTION
     Dosage: 20 MG, TOTAL DAILY, ORAL
     Route: 048
     Dates: start: 20040908
  5. VARDENAFIL HCL 20 MG (VARDENAFIL HYDROCHLORIDE) [Suspect]
     Indication: ERECTILE DYSFUNCTION
     Dosage: 20 MG, TOTAL DAILY, ORAL
     Route: 048
     Dates: start: 20040912
  6. VARDENAFIL HCL 20 MG (VARDENAFIL HYDROCHLORIDE) [Suspect]
     Indication: ERECTILE DYSFUNCTION
     Dosage: 20 MG, TOTAL DAILY, ORAL
     Route: 048
     Dates: start: 20040915
  7. VARDENAFIL HCL 20 MG (VARDENAFIL HYDROCHLORIDE) [Suspect]
     Indication: ERECTILE DYSFUNCTION
     Dosage: 20 MG, TOTAL DAILY, ORAL
     Route: 048
     Dates: start: 20040919
  8. VARDENAFIL HCL 20 MG (VARDENAFIL HYDROCHLORIDE) [Suspect]
     Indication: ERECTILE DYSFUNCTION
     Dosage: 20 MG, TOTAL DAILY, ORAL
     Route: 048
     Dates: start: 20040920
  9. AMARYL [Suspect]
     Indication: DIABETES MELLITUS
     Dosage: 1 MG, BID, ORAL
     Route: 048
     Dates: start: 20040601, end: 20041001
  10. SOLITA-T3 INJECTION [Concomitant]
  11. AMINOFLUID [Concomitant]

REACTIONS (7)
  - ALCOHOL USE [None]
  - BODY TEMPERATURE DECREASED [None]
  - CYTOMEGALOVIRUS ANTIBODY POSITIVE [None]
  - HEPATITIS A POSITIVE [None]
  - HEPATITIS ACUTE [None]
  - NASOPHARYNGITIS [None]
  - PAIN [None]
